FAERS Safety Report 9975127 (Version 1)
Quarter: 2014Q1

REPORT INFORMATION
  Report Type: Report from Study
  Country: US (occurrence: US)
  Receive Date: 20140306
  Receipt Date: 20140306
  Transmission Date: 20141002
  Serious: Yes (Hospitalization)
  Sender: FDA-Public Use
  Company Number: US-ABBVIE-13P-163-1160928-00

PATIENT
  Age: 47 Year
  Sex: Female
  Weight: 86.26 kg

DRUGS (5)
  1. HUMIRA [Suspect]
     Indication: COLITIS ULCERATIVE
     Dates: start: 201301, end: 201301
  2. HUMIRA [Suspect]
     Dates: start: 201301, end: 201301
  3. HUMIRA [Suspect]
     Dates: start: 201302, end: 201310
  4. HUMIRA [Suspect]
     Dates: start: 201310
  5. ASACOL [Concomitant]
     Indication: PRODUCT USED FOR UNKNOWN INDICATION

REACTIONS (2)
  - Colitis ulcerative [Recovering/Resolving]
  - Blood potassium decreased [Recovered/Resolved]
